FAERS Safety Report 16088960 (Version 2)
Quarter: 2020Q4

REPORT INFORMATION
  Report Type: Spontaneous
  Country: US (occurrence: US)
  Receive Date: 20190319
  Receipt Date: 20201125
  Transmission Date: 20210113
  Serious: Yes (Disabling)
  Sender: FDA-Public Use
  Company Number: US-TEVA-2019-US-1024947

PATIENT
  Age: 54 Year
  Sex: Female

DRUGS (9)
  1. NEOSAR [Concomitant]
     Active Substance: CYCLOPHOSPHAMIDE
     Indication: BREAST CANCER FEMALE
     Dosage: DOSAGE: UNKNOWN; EVERY THREE WEEKS, NUMBER OF CYCLES: 05
     Route: 065
     Dates: start: 20130225, end: 20130520
  2. DIOVAN [Concomitant]
     Active Substance: VALSARTAN
     Dates: start: 199501
  3. TAXOTERE [Suspect]
     Active Substance: DOCETAXEL
     Indication: BREAST CANCER FEMALE
     Dosage: DOSAGE: 165MG; EVERY THREE WEEKS, NUMBER OF CYCLES: 05
     Route: 065
     Dates: start: 20130225, end: 20130520
  4. DOCETAXEL HOSPIRA [Suspect]
     Active Substance: DOCETAXEL
     Indication: BREAST CANCER FEMALE
     Dosage: DOSAGE: 165MG; EVERY THREE WEEKS, NUMBER OF CYCLES: 05
     Route: 065
     Dates: start: 20130225, end: 20130520
  5. ADRIAMYCIN [Concomitant]
     Active Substance: DOXORUBICIN HYDROCHLORIDE
     Indication: BREAST CANCER FEMALE
     Dosage: DOSAGE: UNKNOWN; EVERY THREE WEEKS, NUMBER OF CYCLES: 05
     Route: 065
     Dates: start: 20130225, end: 20130520
  6. LIPITOR [Concomitant]
     Active Substance: ATORVASTATIN CALCIUM
     Dates: start: 199501
  7. SYNTHROID [Concomitant]
     Active Substance: LEVOTHYROXINE SODIUM
     Dates: start: 199501
  8. SYNTHROID [Concomitant]
     Active Substance: LEVOTHYROXINE SODIUM
     Dates: start: 200001
  9. LETROZOLE. [Concomitant]
     Active Substance: LETROZOLE
     Dates: start: 201402

REACTIONS (4)
  - Alopecia areata [Not Recovered/Not Resolved]
  - Madarosis [Not Recovered/Not Resolved]
  - Hair texture abnormal [Not Recovered/Not Resolved]
  - Hair colour changes [Not Recovered/Not Resolved]

NARRATIVE: CASE EVENT DATE: 201311
